FAERS Safety Report 7110200-8 (Version None)
Quarter: 2010Q4

REPORT INFORMATION
  Report Type: 
  Country: None (occurrence: None)
  Receive Date: 20101116
  Receipt Date: 20101116
  Transmission Date: 20110411
  Serious: Yes (Other)
  Sender: FDA-Public Use
  Company Number: None

PATIENT
  Age: 2 Month
  Sex: Female
  Weight: 2.7216 kg

DRUGS (1)
  1. HYLANDS TEETHING TABLETS BELLADONNA HYLANDS [Suspect]
     Indication: TEETHING
     Dosage: 2-4 4 TIMES DAY SL
     Route: 060
     Dates: start: 20100830, end: 20101106

REACTIONS (1)
  - CONSTIPATION [None]
